FAERS Safety Report 20434629 (Version 2)
Quarter: 2022Q1

REPORT INFORMATION
  Report Type: Report from Study
  Country: US (occurrence: US)
  Receive Date: 20220206
  Receipt Date: 20220208
  Transmission Date: 20220423
  Serious: No
  Sender: FDA-Public Use
  Company Number: US-NOVARTISTESTPH-NVSC2022US025101

PATIENT
  Age: 17 Year
  Sex: Female

DRUGS (1)
  1. ARZERRA [Suspect]
     Active Substance: OFATUMUMAB
     Indication: Glomerulonephritis membranous
     Dosage: 300 MG, QD
     Route: 042
     Dates: start: 20220203

REACTIONS (3)
  - Oropharyngeal pain [Unknown]
  - Dyspnoea [Unknown]
  - Chest discomfort [Unknown]

NARRATIVE: CASE EVENT DATE: 20220203
